FAERS Safety Report 8920852 (Version 1)
Quarter: 2012Q4

REPORT INFORMATION
  Report Type: 
  Country: JP (occurrence: JP)
  Receive Date: 20121121
  Receipt Date: 20121121
  Transmission Date: 20130627
  Serious: Yes (Hospitalization)
  Sender: FDA-Public Use
  Company Number: JP-B.I. PHARMACEUTICALS,INC./RIDGEFIELD-2012-BI-00580NB

PATIENT
  Age: 77 Year
  Sex: Female

DRUGS (7)
  1. SIFROL [Suspect]
     Indication: RESTLESS LEGS SYNDROME
     Dosage: 1 mg
     Route: 048
  2. BAYASPIRIN [Concomitant]
     Route: 065
  3. LIPITOR [Concomitant]
     Route: 065
  4. PARIET [Concomitant]
     Route: 065
  5. ADALAT [Concomitant]
     Route: 065
  6. OLMETEC [Concomitant]
     Route: 065
  7. LOXONIN [Concomitant]
     Route: 065

REACTIONS (2)
  - Mediastinitis [Recovered/Resolved]
  - Sepsis [Recovered/Resolved]
